FAERS Safety Report 6191094-4 (Version None)
Quarter: 2009Q2

REPORT INFORMATION
  Report Type: 
  Country: None (occurrence: None)
  Receive Date: 20090513
  Receipt Date: 20090513
  Transmission Date: 20091009
  Serious: Yes (Other)
  Sender: FDA-Public Use
  Company Number: None

PATIENT
  Age: 79 Year
  Sex: Female
  Weight: 63.5036 kg

DRUGS (2)
  1. TRAMADOL HCL [Suspect]
     Indication: BACK PAIN
     Dosage: 50 MG 2 X 6 HRS MOUTH
     Route: 048
     Dates: start: 20090414
  2. TRAMADOL HCL [Suspect]
     Indication: BACK PAIN
     Dosage: 50 MG 2 X 6 HRS MOUTH
     Route: 048
     Dates: start: 20090415

REACTIONS (5)
  - ANOREXIA [None]
  - CONFUSIONAL STATE [None]
  - HALLUCINATION [None]
  - HEADACHE [None]
  - NAUSEA [None]
